FAERS Safety Report 26171374 (Version 1)
Quarter: 2025Q4

REPORT INFORMATION
  Report Type: Spontaneous
  Country: EU (occurrence: EU)
  Receive Date: 20251217
  Receipt Date: 20251217
  Transmission Date: 20260117
  Serious: Yes (Death)
  Sender: MYLAN
  Company Number: EU-AUROBINDO-AUR-APL-2025-061492

PATIENT
  Sex: Male

DRUGS (8)
  1. IMATINIB [Suspect]
     Active Substance: IMATINIB
     Indication: Dermatofibrosarcoma protuberans
     Dosage: UNK
  2. IMATINIB [Suspect]
     Active Substance: IMATINIB
     Dosage: UNK
     Route: 065
  3. IMATINIB [Suspect]
     Active Substance: IMATINIB
     Dosage: UNK
     Route: 065
  4. IMATINIB [Suspect]
     Active Substance: IMATINIB
     Dosage: UNK
  5. SUNITINIB [Suspect]
     Active Substance: SUNITINIB
     Indication: Dermatofibrosarcoma protuberans
     Dosage: UNK
  6. SUNITINIB [Suspect]
     Active Substance: SUNITINIB
     Dosage: UNK
     Route: 065
  7. SUNITINIB [Suspect]
     Active Substance: SUNITINIB
     Dosage: UNK
     Route: 065
  8. SUNITINIB [Suspect]
     Active Substance: SUNITINIB
     Dosage: UNK

REACTIONS (1)
  - Disease progression [Fatal]
